FAERS Safety Report 9344405 (Version 3)
Quarter: 2013Q3

REPORT INFORMATION
  Report Type: Spontaneous
  Country: US (occurrence: US)
  Receive Date: 20130612
  Receipt Date: 20130715
  Transmission Date: 20140515
  Serious: Yes (Other)
  Sender: FDA-Public Use
  Company Number: US-JNJFOC-20130504129

PATIENT
  Age: 27 Year
  Sex: Female

DRUGS (7)
  1. TOPAMAX [Suspect]
     Indication: HEADACHE
     Route: 048
     Dates: start: 2002, end: 2002
  2. TOPAMAX [Suspect]
     Indication: DRUG THERAPY
     Route: 048
     Dates: start: 2002, end: 2002
  3. TOPAMAX [Suspect]
     Indication: WEIGHT DECREASED
     Route: 048
     Dates: start: 2002, end: 2002
  4. PROZAC [Suspect]
     Indication: DEPRESSION
     Route: 065
  5. ALBUTEROL [Suspect]
     Indication: ASTHMA
     Route: 055
  6. CIPROFLOXACIN [Suspect]
     Indication: PRODUCT USED FOR UNKNOWN INDICATION
     Route: 065
  7. SYMBICORT [Suspect]
     Indication: ASTHMA
     Route: 055

REACTIONS (5)
  - Exposure during pregnancy [Recovered/Resolved]
  - Haemorrhage in pregnancy [Unknown]
  - Emotional distress [Unknown]
  - Anxiety [Unknown]
  - Off label use [Unknown]
